FAERS Safety Report 11528907 (Version 1)
Quarter: 2015Q3

REPORT INFORMATION
  Report Type: Spontaneous
  Country: US (occurrence: None)
  Receive Date: 20150918
  Receipt Date: 20150918
  Transmission Date: 20151125
  Serious: Yes (Life-Threatening, Hospitalization, Disabling)
  Sender: FDA-Public Use
  Company Number: None

PATIENT
  Age: 28 Year
  Sex: Female

DRUGS (1)
  1. THYROX 200 [Suspect]
     Active Substance: LEVOTHYROXINE

REACTIONS (2)
  - Acute hepatic failure [None]
  - Autoimmune hepatitis [None]

NARRATIVE: CASE EVENT DATE: 20140911
